FAERS Safety Report 26187796 (Version 1)
Quarter: 2025Q4

REPORT INFORMATION
  Report Type: Spontaneous
  Country: US (occurrence: US)
  Receive Date: 20251222
  Receipt Date: 20251222
  Transmission Date: 20260118
  Serious: Yes (Hospitalization, Other)
  Sender: DR REDDYS
  Company Number: US-DRL-USA-USA/2025/12/019277

PATIENT
  Age: 56 Year
  Sex: Male

DRUGS (1)
  1. METHAMPHETAMINE [Suspect]
     Active Substance: METHAMPHETAMINE
     Indication: Product used for unknown indication

REACTIONS (7)
  - Chronic kidney disease [Unknown]
  - Rhabdomyolysis [Unknown]
  - Metabolic acidosis [Unknown]
  - Hyperphosphataemia [Unknown]
  - Hypertransaminasaemia [Unknown]
  - Acute kidney injury [Unknown]
  - Substance abuse [Unknown]
